FAERS Safety Report 7569086-X (Version None)
Quarter: 2011Q2

REPORT INFORMATION
  Report Type: 
  Country: None (occurrence: None)
  Receive Date: 20110623
  Receipt Date: 20110616
  Transmission Date: 20111010
  Serious: Yes (Disabling)
  Sender: FDA-Public Use
  Company Number: US-US-EMD SERONO, INC.-7065761

PATIENT
  Sex: Male

DRUGS (2)
  1. SAIZEN [Suspect]
     Dates: start: 20110301
  2. SAIZEN [Suspect]
     Indication: HYPOPITUITARISM
     Dates: start: 20110110, end: 20110301

REACTIONS (2)
  - VISION BLURRED [None]
  - BLINDNESS [None]
